FAERS Safety Report 8623505-6 (Version None)
Quarter: 2012Q3

REPORT INFORMATION
  Report Type: 
  Country: None (occurrence: None)
  Receive Date: 20120824
  Receipt Date: 20120824
  Transmission Date: 20120928
  Serious: Yes (Hospitalization)
  Sender: FDA-Public Use
  Company Number: None

PATIENT
  Age: 69 Year
  Sex: Female
  Weight: 71.8 kg

DRUGS (6)
  1. TEMSIROLIMUS [Suspect]
     Dosage: 25 MG, WEEKLY, IV
     Route: 042
     Dates: start: 20120425, end: 20120822
  2. ACYCLOVIR [Concomitant]
  3. HYDRODIURIL [Concomitant]
  4. POTASSIUM CHLORIDE [Concomitant]
  5. VELCADE [Suspect]
     Dosage: 1.6 MG/M2, WEEKLY IV
     Route: 042
     Dates: start: 20120425, end: 20120822
  6. DIOVAN [Concomitant]

REACTIONS (2)
  - BLOOD CULTURE POSITIVE [None]
  - BACTERIAL INFECTION [None]
